FAERS Safety Report 24450793 (Version 1)
Quarter: 2024Q4

REPORT INFORMATION
  Report Type: Spontaneous
  Country: US (occurrence: None)
  Receive Date: 20241017
  Receipt Date: 20241017
  Transmission Date: 20250115
  Serious: Yes (Other)
  Sender: Public
  Company Number: None

PATIENT
  Age: 58 Year
  Sex: Female

DRUGS (3)
  1. REZDIFFRA [Suspect]
     Active Substance: RESMETIROM
     Indication: Metabolic disorder
     Dosage: FREQUENCY : DAILY;?
     Route: 048
     Dates: start: 20240808, end: 20241010
  2. IBUPROFEN [Suspect]
     Active Substance: IBUPROFEN
  3. TYLENOL [Suspect]
     Active Substance: ACETAMINOPHEN

REACTIONS (6)
  - COVID-19 [None]
  - Pruritus [None]
  - Ocular icterus [None]
  - Hepatic enzyme increased [None]
  - Blood bilirubin increased [None]
  - Rash maculo-papular [None]

NARRATIVE: CASE EVENT DATE: 20241010
